FAERS Safety Report 5264380-X (Version None)
Quarter: 2007Q1

REPORT INFORMATION
  Report Type: 
  Country: None (occurrence: None)
  Receive Date: 20070309
  Receipt Date: 20070222
  Transmission Date: 20070707
  Serious: Yes (Hospitalization)
  Sender: FDA-Public Use
  Company Number: GXKR2007SG01962

PATIENT
  Age: 29 Year
  Sex: Male
  Weight: 65 kg

DRUGS (2)
  1. PARACETAMOL (NGX)(PARACETAMOL) UNKNOWN [Suspect]
     Dosage: 30 G (462 MG/KG BODY WEIGHT)
  2. SALBUTAMOL (SALBUTAMOL) [Concomitant]

REACTIONS (13)
  - ABDOMINAL PAIN [None]
  - ALANINE AMINOTRANSFERASE INCREASED [None]
  - ASPARTATE AMINOTRANSFERASE INCREASED [None]
  - CHEST PAIN [None]
  - DIALYSIS [None]
  - DYSPNOEA [None]
  - HEART RATE INCREASED [None]
  - HEPATIC FAILURE [None]
  - JAUNDICE [None]
  - NEPHROPATHY TOXIC [None]
  - OVERDOSE [None]
  - RENAL IMPAIRMENT [None]
  - VOMITING [None]
